FAERS Safety Report 4493337-1 (Version None)
Quarter: 2004Q4

REPORT INFORMATION
  Report Type: 
  Country: None (occurrence: None)
  Receive Date: 20041102
  Receipt Date: 20041022
  Transmission Date: 20050328
  Serious: Yes (Other)
  Sender: FDA-Public Use
  Company Number: 2004050774

PATIENT
  Age: 70 Year
  Sex: Male
  Weight: 95.2554 kg

DRUGS (10)
  1. TIKOSYN [Suspect]
     Indication: ATRIAL FIBRILLATION
     Dosage: 500 MCG (250 MCG, 2 IN 1 D), ORAL
     Route: 048
     Dates: start: 20010501
  2. VALDECOXIB [Suspect]
     Indication: ILL-DEFINED DISORDER
  3. GLYBURIDE [Concomitant]
  4. FUROSEMIDE [Concomitant]
  5. OMEPRAZOLE [Concomitant]
  6. TERAZOSIN (TERAZOSIN) [Concomitant]
  7. ALLOPURINOL [Concomitant]
  8. OLMESARTAN MEDOXOMIL (OLMESARTAN MEDOXOMIL) [Concomitant]
  9. MAGNESIUM OXIDE (MAGNESIUM OXIDE) [Concomitant]
  10. CLONIDINE [Concomitant]

REACTIONS (4)
  - ANAEMIA [None]
  - DISEASE RECURRENCE [None]
  - FULL BLOOD COUNT DECREASED [None]
  - HYPOACUSIS [None]
